FAERS Safety Report 10780715 (Version 1)
Quarter: 2015Q1

REPORT INFORMATION
  Report Type: Spontaneous
  Country: US (occurrence: US)
  Receive Date: 20150210
  Receipt Date: 20150210
  Transmission Date: 20150721
  Serious: No
  Sender: FDA-Public Use
  Company Number: US-GLAXOSMITHKLINE-A1056153A

PATIENT

DRUGS (1)
  1. NICODERM CQ [Suspect]
     Active Substance: NICOTINE
     Indication: EX-TOBACCO USER

REACTIONS (5)
  - Poor quality sleep [Recovered/Resolved]
  - Abnormal dreams [Recovered/Resolved]
  - Overdose [Recovered/Resolved]
  - Insomnia [Recovered/Resolved]
  - Dysgeusia [Recovered/Resolved]
